FAERS Safety Report 23653026 (Version 1)
Quarter: 2024Q1

REPORT INFORMATION
  Report Type: Spontaneous
  Country: US (occurrence: None)
  Receive Date: 20240319
  Receipt Date: 20240319
  Transmission Date: 20240410
  Serious: No
  Sender: FDA-Public Use
  Company Number: None

PATIENT
  Age: 44 Year
  Sex: Female

DRUGS (2)
  1. EPIDIOLEX [Suspect]
     Active Substance: CANNABIDIOL
     Indication: Epilepsy
     Dosage: 100MG BID ORAL
     Route: 048
     Dates: start: 20231011
  2. VIMPAT [Suspect]
     Active Substance: LACOSAMIDE

REACTIONS (4)
  - Seizure [None]
  - Disease recurrence [None]
  - Therapy change [None]
  - Therapy change [None]

NARRATIVE: CASE EVENT DATE: 20240313
